FAERS Safety Report 7014410-X (Version None)
Quarter: 2010Q3

REPORT INFORMATION
  Report Type: 
  Country: None (occurrence: None)
  Receive Date: 20100927
  Receipt Date: 20100914
  Transmission Date: 20110219
  Serious: Yes (Hospitalization)
  Sender: FDA-Public Use
  Company Number: US-ELI_LILLY_AND_COMPANY-US201009003562

PATIENT
  Sex: Female
  Weight: 65.1 kg

DRUGS (7)
  1. CYMBALTA [Suspect]
     Indication: DEPRESSION
     Dosage: 60 MG, DAILY (1/D)
     Route: 048
     Dates: start: 20100720
  2. PLACEBO [Concomitant]
     Indication: DEPRESSION
     Dosage: UNK, DAILY (1/D)
     Route: 048
     Dates: start: 20100720, end: 20100822
  3. PARAGARD T 380A [Concomitant]
     Indication: CONTRACEPTION
     Dates: start: 20070101
  4. GALENIC /DOCUSATE/SENNA/ [Concomitant]
     Dosage: UNK, 2/D
     Route: 048
  5. GALENIC /DOCUSATE/SENNA/ [Concomitant]
     Dosage: UNK, 2/D
     Route: 048
  6. CITALOPRAM HYDROBROMIDE [Concomitant]
     Dosage: 20 MG, DAILY (1/D)
     Route: 048
  7. FERROUS SULFATE [Concomitant]
     Dosage: 325 MG, 2/D
     Route: 048

REACTIONS (1)
  - PYELONEPHRITIS [None]
